FAERS Safety Report 14806180 (Version 3)
Quarter: 2020Q1

REPORT INFORMATION
  Report Type: Spontaneous
  Country: US (occurrence: US)
  Receive Date: 20180425
  Receipt Date: 20200220
  Transmission Date: 20200409
  Serious: Yes (Other)
  Sender: FDA-Public Use
  Company Number: US-ASTRAZENECA-2018SE49808

PATIENT
  Age: 21246 Day
  Sex: Male
  Weight: 95.3 kg

DRUGS (71)
  1. NEXIUM [Suspect]
     Active Substance: ESOMEPRAZOLE MAGNESIUM
     Indication: GASTROOESOPHAGEAL REFLUX DISEASE
     Route: 048
     Dates: start: 20101130
  2. NEXIUM 24HR [Suspect]
     Active Substance: ESOMEPRAZOLE MAGNESIUM
     Indication: GASTROOESOPHAGEAL REFLUX DISEASE
     Route: 048
  3. PREVACID 24 HR [Suspect]
     Active Substance: LANSOPRAZOLE
     Route: 065
  4. IBUPROFEN. [Concomitant]
     Active Substance: IBUPROFEN
  5. NAPROXEN. [Concomitant]
     Active Substance: NAPROXEN
  6. FLUVIRIN NOS [Concomitant]
     Active Substance: INFLUENZA VIRUS VACCINE
  7. CLINDAMYCIN. [Concomitant]
     Active Substance: CLINDAMYCIN
  8. DOCUSATE [Concomitant]
     Active Substance: DOCUSATE
  9. CLOTRIMAZOLE. [Concomitant]
     Active Substance: CLOTRIMAZOLE
  10. GAVILYTE N [Concomitant]
  11. LEVOFLOXACIN. [Concomitant]
     Active Substance: LEVOFLOXACIN
  12. NEXIUM [Suspect]
     Active Substance: ESOMEPRAZOLE MAGNESIUM
     Indication: GASTROOESOPHAGEAL REFLUX DISEASE
     Route: 048
     Dates: start: 20110128
  13. HYDROCODONE [Concomitant]
     Active Substance: HYDROCODONE
  14. AMOXICILLIN. [Concomitant]
     Active Substance: AMOXICILLIN
  15. MELOXICAM. [Concomitant]
     Active Substance: MELOXICAM
  16. PROMETHAZINE [Concomitant]
     Active Substance: PROMETHAZINE HYDROCHLORIDE
  17. DEXAMETHASONE. [Concomitant]
     Active Substance: DEXAMETHASONE
  18. GRIS-PEG [Concomitant]
     Active Substance: GRISEOFULVIN
  19. ERYTHROMYCIN. [Concomitant]
     Active Substance: ERYTHROMYCIN
  20. NEXIUM [Suspect]
     Active Substance: ESOMEPRAZOLE MAGNESIUM
     Indication: GASTROOESOPHAGEAL REFLUX DISEASE
     Route: 048
     Dates: start: 20160825
  21. MORPHINE [Concomitant]
     Active Substance: MORPHINE
  22. GABAPENTIN. [Concomitant]
     Active Substance: GABAPENTIN
  23. DESONIDE. [Concomitant]
     Active Substance: DESONIDE
  24. FLECTOR [Concomitant]
     Active Substance: DICLOFENAC EPOLAMINE
  25. ERGOCALCIFEROL. [Concomitant]
     Active Substance: ERGOCALCIFEROL
  26. NEXIUM [Suspect]
     Active Substance: ESOMEPRAZOLE MAGNESIUM
     Indication: GASTROOESOPHAGEAL REFLUX DISEASE
     Route: 048
     Dates: start: 2008, end: 2016
  27. PRILOSEC [Suspect]
     Active Substance: OMEPRAZOLE MAGNESIUM
     Route: 048
     Dates: start: 20180710
  28. DEXILANT [Suspect]
     Active Substance: DEXLANSOPRAZOLE
     Route: 065
  29. TIZANIDINE. [Concomitant]
     Active Substance: TIZANIDINE
  30. ACETAMINOPHEN. [Concomitant]
     Active Substance: ACETAMINOPHEN
  31. VENLAFAXINE [Concomitant]
     Active Substance: VENLAFAXINE HYDROCHLORIDE
  32. LIPITOR [Concomitant]
     Active Substance: ATORVASTATIN CALCIUM
  33. EPINEPHRINE. [Concomitant]
     Active Substance: EPINEPHRINE
  34. NEXIUM [Suspect]
     Active Substance: ESOMEPRAZOLE MAGNESIUM
     Indication: GASTROOESOPHAGEAL REFLUX DISEASE
     Route: 048
     Dates: start: 2010
  35. PREVACID [Suspect]
     Active Substance: LANSOPRAZOLE
     Route: 065
  36. TRAMADOL. [Concomitant]
     Active Substance: TRAMADOL
  37. SULFAMETHOXAZOLE [Concomitant]
     Active Substance: SULFAMETHOXAZOLE
  38. MINOCYCLINE [Concomitant]
     Active Substance: MINOCYCLINE HYDROCHLORIDE
  39. LIDODERM [Concomitant]
     Active Substance: LIDOCAINE
  40. LISINOPRIL. [Concomitant]
     Active Substance: LISINOPRIL
  41. ROXICET [Concomitant]
     Active Substance: ACETAMINOPHEN\OXYCODONE HYDROCHLORIDE
  42. TERBINAFINE. [Concomitant]
     Active Substance: TERBINAFINE
  43. KETOCONAZOLE. [Concomitant]
     Active Substance: KETOCONAZOLE
  44. NICOTROL [Concomitant]
     Active Substance: NICOTINE
  45. DIAZEPAM. [Concomitant]
     Active Substance: DIAZEPAM
  46. METHYLPREDNISOLONE. [Concomitant]
     Active Substance: METHYLPREDNISOLONE
  47. ELAVIL [Concomitant]
     Active Substance: AMITRIPTYLINE HYDROCHLORIDE
  48. NEXIUM [Suspect]
     Active Substance: ESOMEPRAZOLE MAGNESIUM
     Indication: GASTROOESOPHAGEAL REFLUX DISEASE
     Route: 048
     Dates: start: 2016
  49. NEXIUM [Suspect]
     Active Substance: ESOMEPRAZOLE MAGNESIUM
     Indication: GASTROOESOPHAGEAL REFLUX DISEASE
     Route: 048
     Dates: start: 20120723
  50. PROTONIX [Suspect]
     Active Substance: PANTOPRAZOLE SODIUM
     Route: 065
  51. CEPHALEXIN. [Concomitant]
     Active Substance: CEPHALEXIN
  52. AMLODIPINE [Concomitant]
     Active Substance: AMLODIPINE BESYLATE
  53. NEXIUM [Suspect]
     Active Substance: ESOMEPRAZOLE MAGNESIUM
     Indication: GASTROOESOPHAGEAL REFLUX DISEASE
     Route: 048
     Dates: start: 20160412
  54. DICYCLOMINE [Concomitant]
     Active Substance: DICYCLOMINE HYDROCHLORIDE
  55. CYCLOBENZAPRINE. [Concomitant]
     Active Substance: CYCLOBENZAPRINE
  56. METHOCARBAMOL. [Concomitant]
     Active Substance: METHOCARBAMOL
  57. BUTRANS [Concomitant]
     Active Substance: BUPRENORPHINE
  58. CITALOPRAM [Concomitant]
     Active Substance: CITALOPRAM HYDROBROMIDE
  59. CHLORTHALIDONE. [Concomitant]
     Active Substance: CHLORTHALIDONE
  60. FAMOTIDINE. [Concomitant]
     Active Substance: FAMOTIDINE
  61. NEXIUM [Suspect]
     Active Substance: ESOMEPRAZOLE MAGNESIUM
     Indication: GASTROOESOPHAGEAL REFLUX DISEASE
     Route: 048
     Dates: start: 2012
  62. NEXIUM [Suspect]
     Active Substance: ESOMEPRAZOLE MAGNESIUM
     Indication: GASTROOESOPHAGEAL REFLUX DISEASE
     Dosage: GENERIC
     Route: 065
     Dates: start: 20160412
  63. PRILOSEC OTC [Suspect]
     Active Substance: OMEPRAZOLE MAGNESIUM
     Route: 048
  64. ETODOLAC. [Concomitant]
     Active Substance: ETODOLAC
  65. OXYCODONE [Concomitant]
     Active Substance: OXYCODONE
  66. ONDANSETRON [Concomitant]
     Active Substance: ONDANSETRON
  67. HYDROCHLOROTHIAZIDE. [Concomitant]
     Active Substance: HYDROCHLOROTHIAZIDE
  68. AMITRIPTYLINE [Concomitant]
     Active Substance: AMITRIPTYLINE
  69. DIFLUNISAL. [Concomitant]
     Active Substance: DIFLUNISAL
  70. PROAIR HFA [Concomitant]
     Active Substance: ALBUTEROL SULFATE
  71. RIZATRIPTAN. [Concomitant]
     Active Substance: RIZATRIPTAN

REACTIONS (3)
  - Hyperchlorhydria [Unknown]
  - Chronic kidney disease [Not Recovered/Not Resolved]
  - Renal failure [Unknown]

NARRATIVE: CASE EVENT DATE: 20160825
